FAERS Safety Report 4429361-4 (Version None)
Quarter: 2004Q3

REPORT INFORMATION
  Report Type: 
  Country: None (occurrence: None)
  Receive Date: 20040816
  Receipt Date: 20040728
  Transmission Date: 20050211
  Serious: Yes (Hospitalization)
  Sender: FDA-Public Use
  Company Number: S04-USA-03774-01

PATIENT
  Age: 24 Year
  Sex: Female

DRUGS (9)
  1. LEXAPRO [Suspect]
     Indication: DEPRESSION
     Dosage: 10 MG QD; PO
     Route: 048
     Dates: start: 20040601, end: 20040626
  2. LEXAPRO [Suspect]
     Indication: DEPRESSION
     Dosage: 10 MG QD; PO
     Route: 048
     Dates: start: 20040628, end: 20040701
  3. VIOXX [Concomitant]
  4. ELAVIL [Concomitant]
  5. GABITRIL [Concomitant]
  6. ABILIFY [Concomitant]
  7. ZYPREXA [Concomitant]
  8. TORADOL [Concomitant]
  9. SONATA [Concomitant]

REACTIONS (15)
  - AGGRESSION [None]
  - AMNESIA [None]
  - COMA [None]
  - DIARRHOEA [None]
  - DYSKINESIA [None]
  - HYPERHIDROSIS [None]
  - HYPERTENSION [None]
  - MALAISE [None]
  - REFUSAL OF TREATMENT BY PATIENT [None]
  - SOMATOFORM DISORDER [None]
  - SPEECH DISORDER [None]
  - SUICIDAL IDEATION [None]
  - TREMOR [None]
  - URTICARIA [None]
  - VOMITING [None]
